FAERS Safety Report 4872768-1 (Version None)
Quarter: 2005Q4

REPORT INFORMATION
  Report Type: 
  Country: None (occurrence: None)
  Receive Date: 20051230
  Receipt Date: 20050919
  Transmission Date: 20060501
  Serious: Yes (Other)
  Sender: FDA-Public Use
  Company Number: 1713747/2005/000022

PATIENT

DRUGS (1)
  1. PREMIER 1.5% DEX. ML 2L, 5-PK [Suspect]
     Indication: RENAL FAILURE
     Dosage: INTRAPERITONEALLY
     Route: 033
     Dates: start: 20050911

REACTIONS (1)
  - PERITONITIS [None]
